FAERS Safety Report 17087139 (Version 1)
Quarter: 2019Q4

REPORT INFORMATION
  Report Type: Spontaneous
  Country: US (occurrence: US)
  Receive Date: 20191128
  Receipt Date: 20191128
  Transmission Date: 20200122
  Serious: Yes (Hospitalization, Other)
  Sender: FDA-Public Use
  Company Number: US-GLAND PHARMA LIMITED-2077288

PATIENT
  Age: 37 Year
  Sex: Female

DRUGS (5)
  1. ACETAMINOPHEN. [Concomitant]
     Active Substance: ACETAMINOPHEN
  2. IBUPROFEN REGIMEN [Suspect]
     Active Substance: IBUPROFEN
  3. KETOROLAC TROMETHAMINE. [Suspect]
     Active Substance: KETOROLAC TROMETHAMINE
     Indication: PELVIC CONGESTION
     Route: 042
  4. IBUPROFEN. [Suspect]
     Active Substance: IBUPROFEN
  5. IBUPROFEN REGIMEN [Suspect]
     Active Substance: IBUPROFEN

REACTIONS (1)
  - Renal infarct [Recovering/Resolving]
